FAERS Safety Report 23530900 (Version 2)
Quarter: 2024Q1

REPORT INFORMATION
  Report Type: Spontaneous
  Country: GB (occurrence: GB)
  Receive Date: 20240216
  Receipt Date: 20240313
  Transmission Date: 20240410
  Serious: Yes (Hospitalization)
  Sender: FDA-Public Use
  Company Number: GB-MYLANLABS-2024M1008030

PATIENT
  Age: 56 Year
  Sex: Male

DRUGS (5)
  1. CLOZARIL [Suspect]
     Active Substance: CLOZAPINE
     Indication: Schizophrenia
     Dosage: STANDARD TITRATION
     Route: 048
     Dates: start: 20240112
  2. CLOZARIL [Suspect]
     Active Substance: CLOZAPINE
     Dosage: SLOW TITRATION
     Route: 065
     Dates: start: 20240125, end: 20240126
  3. DEPAKOTE [Concomitant]
     Active Substance: DIVALPROEX SODIUM
     Dosage: 1500 MILLIGRAM
     Route: 065
  4. DEPAKOTE [Concomitant]
     Active Substance: DIVALPROEX SODIUM
     Dosage: 1000 MILLIGRAM
     Route: 065
     Dates: start: 20240126
  5. ARIPIPRAZOLE [Concomitant]
     Active Substance: ARIPIPRAZOLE
     Dosage: 10 MILLIGRAM, DAILY
     Route: 065

REACTIONS (6)
  - Hemiparesis [Recovering/Resolving]
  - Gait disturbance [Recovering/Resolving]
  - Salivary hypersecretion [Recovering/Resolving]
  - Cardiac arrest [Recovering/Resolving]
  - Dysarthria [Recovering/Resolving]
  - Differential white blood cell count abnormal [Unknown]

NARRATIVE: CASE EVENT DATE: 20240112
